FAERS Safety Report 9206888 (Version 2)
Quarter: 2013Q4

REPORT INFORMATION
  Report Type: Spontaneous
  Country: US (occurrence: US)
  Receive Date: 20130403
  Receipt Date: 20131226
  Transmission Date: 20140711
  Serious: Yes (Other)
  Sender: FDA-Public Use
  Company Number: US-BAYER-2013-041479

PATIENT
  Age: 18 Year
  Sex: Female

DRUGS (10)
  1. YAZ [Suspect]
     Dosage: UNK
     Dates: start: 20110415
  2. YASMIN [Suspect]
     Dosage: UNK
     Dates: start: 20110415
  3. OCELLA [Suspect]
     Dosage: UNK
     Dates: start: 20110415
  4. GIANVI [Suspect]
     Dosage: UNK
     Dates: start: 20110415
  5. PREVACID [Concomitant]
     Dosage: UNK
     Dates: start: 20110601
  6. PRILOSEC [Concomitant]
     Dosage: UNK
     Dates: start: 20110601
  7. BENTYL [Concomitant]
     Dosage: UNK
     Dates: start: 20110601
  8. DONNATAL [Concomitant]
     Dosage: UNK
     Dates: start: 20110601
  9. ULTRAM [Concomitant]
     Indication: PAIN
     Dosage: INTERMITTENTLY
     Dates: start: 20110601
  10. LEVSIN [Concomitant]
     Dosage: UNK
     Dates: start: 20110601

REACTIONS (9)
  - Gallbladder injury [None]
  - Deep vein thrombosis [None]
  - Injury [None]
  - Pain [None]
  - General physical health deterioration [None]
  - Emotional distress [None]
  - Pain [None]
  - Anxiety [None]
  - Biliary dyskinesia [None]
